FAERS Safety Report 12849863 (Version 1)
Quarter: 2016Q4

REPORT INFORMATION
  Report Type: Spontaneous
  Country: US (occurrence: US)
  Receive Date: 20161014
  Receipt Date: 20161014
  Transmission Date: 20170207
  Serious: No
  Sender: FDA-Public Use
  Company Number: US-ROCHE-1800500

PATIENT

DRUGS (2)
  1. ESBRIET [Suspect]
     Active Substance: PIRFENIDONE
     Indication: IDIOPATHIC PULMONARY FIBROSIS
     Dosage: 2 CAPSULES, EACH MEAL
     Route: 048
     Dates: start: 201410
  2. OFEV [Concomitant]
     Active Substance: NINTEDANIB

REACTIONS (2)
  - Drug effect decreased [Unknown]
  - Drug intolerance [Unknown]
